FAERS Safety Report 12169502 (Version 1)
Quarter: 2016Q1

REPORT INFORMATION
  Report Type: Report from Study
  Country: US (occurrence: US)
  Receive Date: 20160310
  Receipt Date: 20160310
  Transmission Date: 20160526
  Serious: Yes (Other)
  Sender: FDA-Public Use
  Company Number: US-SA-2016SA046433

PATIENT
  Sex: Female

DRUGS (1)
  1. ALLEGRA [Suspect]
     Active Substance: FEXOFENADINE HYDROCHLORIDE
     Route: 048

REACTIONS (11)
  - Fatigue [Unknown]
  - Myalgia [Unknown]
  - Sleep apnoea syndrome [Unknown]
  - Asthenia [Unknown]
  - Periodic limb movement disorder [Unknown]
  - Gastrooesophageal reflux disease [Unknown]
  - Cataract [Unknown]
  - Muscle spasms [Unknown]
  - Dyslipidaemia [Unknown]
  - Rhinitis allergic [Unknown]
  - Drug intolerance [Unknown]
